FAERS Safety Report 8217293-5 (Version None)
Quarter: 2012Q1

REPORT INFORMATION
  Report Type: 
  Country: None (occurrence: None)
  Receive Date: 20120319
  Receipt Date: 20120313
  Transmission Date: 20120608
  Serious: No
  Sender: FDA-Public Use
  Company Number: US-PFIZER INC-2012067379

PATIENT
  Sex: Male
  Weight: 73.923 kg

DRUGS (3)
  1. ZOCOR [Concomitant]
     Dosage: UNK
  2. SUTENT [Suspect]
     Indication: METASTATIC RENAL CELL CARCINOMA
     Dosage: 50 MG (1 CAPSULE) DAILY, CYCLE 4 WEEKS ON AND 2 OFF
     Dates: start: 20111001
  3. ACETYLSALICYLIC ACID [Concomitant]
     Dosage: 81 MG, UNK

REACTIONS (4)
  - PAIN IN EXTREMITY [None]
  - DYSGEUSIA [None]
  - NAUSEA [None]
  - HAIR COLOUR CHANGES [None]
